FAERS Safety Report 6816125-7 (Version None)
Quarter: 2010Q3

REPORT INFORMATION
  Report Type: 
  Country: None (occurrence: None)
  Receive Date: 20100702
  Receipt Date: 20100702
  Transmission Date: 20110219
  Serious: Yes (Other)
  Sender: FDA-Public Use
  Company Number: None

PATIENT
  Sex: Female

DRUGS (1)
  1. PRISTIQ [Suspect]
     Indication: DEPRESSION
     Dosage: 50MG ONE A DAY PO
     Route: 048
     Dates: start: 20100601, end: 20100701

REACTIONS (2)
  - DRUG WITHDRAWAL SYNDROME [None]
  - PRODUCT MEASURED POTENCY ISSUE [None]
